FAERS Safety Report 14651244 (Version 1)
Quarter: 2018Q1

REPORT INFORMATION
  Report Type: Other
  Country: None (occurrence: IT)
  Receive Date: 20180316
  Receipt Date: 20180316
  Transmission Date: 20180509
  Serious: Yes (Other)
  Sender: FDA-Public Use
  Company Number: IT-LABORATOIRE HRA PHARMA-2043971

PATIENT
  Age: 66 Year
  Sex: Male
  Weight: 70 kg

DRUGS (5)
  1. METOPIRONE [Suspect]
     Active Substance: METYRAPONE
     Indication: CUSHING^S SYNDROME
     Route: 048
  2. ETOPOSIDE. [Suspect]
     Active Substance: ETOPOSIDE
  3. DOXORUBICIN [Suspect]
     Active Substance: DOXORUBICIN
  4. MITOTANE [Suspect]
     Active Substance: MITOTANE
     Route: 048
  5. CISPLATIN. [Suspect]
     Active Substance: CISPLATIN

REACTIONS (3)
  - Asthenia [Recovered/Resolved]
  - Anaemia [Recovered/Resolved]
  - Nausea [Recovered/Resolved]
